FAERS Safety Report 8823267 (Version 1)
Quarter: 2012Q4

REPORT INFORMATION
  Report Type: 
  Country: AT (occurrence: AT)
  Receive Date: 20121003
  Receipt Date: 20121003
  Transmission Date: 20130627
  Serious: Yes (Hospitalization)
  Sender: FDA-Public Use
  Company Number: AT-GLAXOSMITHKLINE-B0832490A

PATIENT
  Sex: Female
  Weight: 55 kg

DRUGS (1)
  1. PAZOPANIB [Suspect]
     Indication: OFF LABEL USE
     Dosage: 400MG Twice per day
     Route: 048
     Dates: start: 20120725

REACTIONS (1)
  - Pyrexia [Recovered/Resolved]
